FAERS Safety Report 7959513-8 (Version None)
Quarter: 2011Q4

REPORT INFORMATION
  Report Type: 
  Country: None (occurrence: None)
  Receive Date: 20111206
  Receipt Date: 20111203
  Transmission Date: 20120403
  Serious: No
  Sender: FDA-Public Use
  Company Number: US-PFIZER INC-2011295087

PATIENT
  Sex: Female

DRUGS (1)
  1. VFEND [Suspect]
     Indication: FUNGAL INFECTION
     Dosage: 200 MG, 2X/DAY
     Route: 048
     Dates: start: 20111107

REACTIONS (4)
  - PALPITATIONS [None]
  - DYSPNOEA [None]
  - CARDIOVASCULAR DISORDER [None]
  - HYPOKINESIA [None]
